FAERS Safety Report 7424974-X (Version None)
Quarter: 2011Q2

REPORT INFORMATION
  Report Type: 
  Country: None (occurrence: None)
  Receive Date: 20110419
  Receipt Date: 20110325
  Transmission Date: 20111010
  Serious: Yes (Life-Threatening, Hospitalization, Other)
  Sender: FDA-Public Use
  Company Number: US-BAYER-2011-001504

PATIENT
  Age: 27 Year
  Sex: Female
  Weight: 79 kg

DRUGS (3)
  1. WELLBUTRIN [Concomitant]
     Dosage: 75 MG, QD
     Route: 048
  2. YASMIN [Suspect]
     Indication: PREMENSTRUAL SYNDROME
     Dosage: UNK
     Dates: start: 20050801, end: 20061101
  3. ZOLOFT [Concomitant]
     Dosage: 100 MG, QD
     Route: 048

REACTIONS (16)
  - DEEP VEIN THROMBOSIS [None]
  - ANXIETY [None]
  - LUNG DISORDER [None]
  - PAIN [None]
  - EMOTIONAL DISTRESS [None]
  - OEDEMA PERIPHERAL [None]
  - DYSPNOEA [None]
  - FATIGUE [None]
  - QUALITY OF LIFE DECREASED [None]
  - CHEST PAIN [None]
  - PULMONARY EMBOLISM [None]
  - VENOUS VALVE RUPTURED [None]
  - GENERAL PHYSICAL HEALTH DETERIORATION [None]
  - PULMONARY HYPERTENSION [None]
  - DIZZINESS [None]
  - WEIGHT INCREASED [None]
